FAERS Safety Report 4707504-2 (Version None)
Quarter: 2005Q3

REPORT INFORMATION
  Report Type: 
  Country: None (occurrence: None)
  Receive Date: 20050701
  Receipt Date: 20050621
  Transmission Date: 20060218
  Serious: Yes (Hospitalization)
  Sender: FDA-Public Use
  Company Number: 200511945GDS

PATIENT
  Age: 55 Year
  Sex: Female

DRUGS (4)
  1. CIPROFLOXACIN [Suspect]
     Indication: EAR INFECTION
     Dosage: 1000 MG, TOTAL DAILY, ORAL
     Route: 048
     Dates: start: 20041012, end: 20041023
  2. CARBAMAZEPINE [Suspect]
     Dosage: 800 MG, TOTAL DAILY, ORAL
     Route: 048
     Dates: start: 19970617, end: 20041121
  3. ATARAX [Concomitant]
  4. NAPROXEN [Concomitant]

REACTIONS (7)
  - BACTERAEMIA [None]
  - CHILLS [None]
  - DERMATITIS EXFOLIATIVE [None]
  - MALAISE [None]
  - PRURITUS [None]
  - PYREXIA [None]
  - RASH PUSTULAR [None]
